FAERS Safety Report 9714859 (Version 1)
Quarter: 2013Q4

REPORT INFORMATION
  Report Type: Spontaneous
  Country: BR (occurrence: None)
  Receive Date: 20131125
  Receipt Date: 20131125
  Transmission Date: 20140711
  Serious: Yes (Hospitalization, Other)
  Sender: FDA-Public Use
  Company Number: FK201305052

PATIENT
  Age: 78 Year
  Sex: Female

DRUGS (8)
  1. DEXAMETHASONE [Suspect]
     Indication: PRODUCT USED FOR UNKNOWN INDICATION
  2. TEMOZOLOMIDE [Suspect]
     Indication: GLIOBLASTOMA MULTIFORME
  3. OMEPRAZOLE (OMEPRAZOLE) [Concomitant]
  4. AMLODIPINE (AMLODIPINE) [Concomitant]
  5. METFORMIN (METFORMIN) [Concomitant]
  6. GLICLAZINE (GLICLAZINE) [Concomitant]
  7. SITAGLIPTIN (SITAGLIPTIN) [Concomitant]
  8. SULFAMETHOXAZOLE W/TRIMETHOPRIM (BACTRIM) [Concomitant]

REACTIONS (3)
  - Bronchopulmonary aspergillosis [None]
  - Lymphopenia [None]
  - Nausea [None]
